FAERS Safety Report 8349063-1 (Version None)
Quarter: 2012Q2

REPORT INFORMATION
  Report Type: 
  Country: None (occurrence: None)
  Receive Date: 20120508
  Receipt Date: 20120426
  Transmission Date: 20120825
  Serious: Yes (Other)
  Sender: FDA-Public Use
  Company Number: DKLU1079134

PATIENT
  Age: 7 Year

DRUGS (2)
  1. ONFI [Suspect]
     Indication: EPILEPSY
     Dosage: 0.3 MG/KG MILLIGRAM(S) / KILOGRAM, 1 IN 1 D, ORAL   0.2 MG/ KG MILLIGRAM (S)/ KILOGRAM, 1 IN 1 D, OR
     Route: 048
     Dates: start: 20120409, end: 20120417
  2. ONFI [Suspect]
     Indication: EPILEPSY
     Dosage: 0.3 MG/KG MILLIGRAM(S) / KILOGRAM, 1 IN 1 D, ORAL   0.2 MG/ KG MILLIGRAM (S)/ KILOGRAM, 1 IN 1 D, OR
     Route: 048
     Dates: start: 20120418

REACTIONS (2)
  - BRADYCARDIA [None]
  - BLOOD PRESSURE DECREASED [None]
